FAERS Safety Report 5706131-8 (Version None)
Quarter: 2008Q2

REPORT INFORMATION
  Report Type: 
  Country: None (occurrence: None)
  Receive Date: 20080415
  Receipt Date: 20080403
  Transmission Date: 20081010
  Serious: Yes (Hospitalization)
  Sender: FDA-Public Use
  Company Number: FR-GILEAD-2008-0015958

PATIENT
  Sex: Male

DRUGS (9)
  1. TRUVADA [Suspect]
     Indication: HIV INFECTION
     Route: 048
     Dates: start: 20070301, end: 20080212
  2. REYATAZ [Concomitant]
     Indication: HIV INFECTION
     Route: 048
     Dates: start: 20070301
  3. NORVIR [Concomitant]
     Indication: HIV INFECTION
     Route: 048
     Dates: start: 20070301
  4. LEXOMIL [Concomitant]
  5. PARKINANE [Concomitant]
  6. ZOLOFT [Concomitant]
  7. DEPAKOTE [Concomitant]
  8. WELLVONE [Concomitant]
  9. CLOPIXOL [Concomitant]

REACTIONS (2)
  - FRACTURE [None]
  - RENAL TUBULAR DISORDER [None]
